FAERS Safety Report 10166105 (Version 1)
Quarter: 2014Q2

REPORT INFORMATION
  Report Type: Spontaneous
  Country: PL (occurrence: PL)
  Receive Date: 20140512
  Receipt Date: 20140512
  Transmission Date: 20141212
  Serious: Yes (Hospitalization)
  Sender: FDA-Public Use
  Company Number: PL-ROCHE-1396330

PATIENT
  Sex: Male

DRUGS (1)
  1. CYMEVENE [Suspect]
     Indication: MENINGITIS VIRAL
     Route: 065

REACTIONS (2)
  - Myelitis [Unknown]
  - General physical health deterioration [Unknown]
